FAERS Safety Report 13354853 (Version 2)
Quarter: 2017Q1

REPORT INFORMATION
  Report Type: Spontaneous
  Country: JP (occurrence: JP)
  Receive Date: 20170321
  Receipt Date: 20170328
  Transmission Date: 20170429
  Serious: Yes (Death, Other)
  Sender: FDA-Public Use
  Company Number: JP-009507513-1703JPN001620J

PATIENT
  Age: 79 Year
  Sex: Male
  Weight: 45 kg

DRUGS (9)
  1. FINIBAX [Suspect]
     Active Substance: DORIPENEM MONOHYDRATE
     Indication: FEBRILE NEUTROPENIA
     Dosage: 0.5 G, TID
     Route: 051
     Dates: start: 20160823, end: 20160902
  2. LASTET [Suspect]
     Active Substance: ETOPOSIDE
     Dosage: UNK
     Route: 065
  3. PHOSRIBBON [Concomitant]
     Indication: HYPOPHOSPHATAEMIA
     Dosage: 300 MG, TID
     Route: 048
     Dates: start: 20160826, end: 20160906
  4. CANCIDAS [Suspect]
     Active Substance: CASPOFUNGIN ACETATE
     Indication: FEBRILE NEUTROPENIA
     Dosage: 70 MG, QD
     Route: 041
     Dates: start: 20160825, end: 20160825
  5. TEICOPLANIN [Concomitant]
     Active Substance: TEICOPLANIN
     Indication: FEBRILE NEUTROPENIA
     Dosage: 300 MG, QD
     Route: 051
     Dates: start: 20160807, end: 20160829
  6. CANCIDAS [Suspect]
     Active Substance: CASPOFUNGIN ACETATE
     Indication: FEBRILE NEUTROPENIA
     Dosage: 50 MG, QD
     Route: 041
     Dates: start: 20160826, end: 20160902
  7. PARAPLATIN [Suspect]
     Active Substance: CARBOPLATIN
     Dosage: UNK
     Route: 051
  8. IFOMIDE [Suspect]
     Active Substance: IFOSFAMIDE
     Dosage: UNK
     Route: 051
  9. NEUTROGIN [Concomitant]
     Active Substance: LENOGRASTIM
     Indication: NEUTROPENIA
     Dosage: 100 MICROGRAM, QD
     Route: 051
     Dates: start: 20160822, end: 20160828

REACTIONS (5)
  - Lymphoma [Fatal]
  - Alanine aminotransferase increased [Recovering/Resolving]
  - Aspartate aminotransferase increased [Recovering/Resolving]
  - White blood cell count decreased [Recovering/Resolving]
  - Blood alkaline phosphatase increased [Recovering/Resolving]

NARRATIVE: CASE EVENT DATE: 20160826
